FAERS Safety Report 8465428-1 (Version None)
Quarter: 2012Q2

REPORT INFORMATION
  Report Type: 
  Country: None (occurrence: None)
  Receive Date: 20120626
  Receipt Date: 20120619
  Transmission Date: 20120825
  Serious: Yes (Other)
  Sender: FDA-Public Use
  Company Number: PHEH2012US006468

PATIENT
  Sex: Female
  Weight: 105.67 kg

DRUGS (5)
  1. GILENYA [Suspect]
     Indication: RELAPSING-REMITTING MULTIPLE SCLEROSIS
     Dosage: 0.5 MG, QD
     Route: 048
     Dates: start: 20110202, end: 20120314
  2. VITAMIN D [Concomitant]
     Dosage: 5000 IU, QD
     Route: 048
  3. MICRONOR [Concomitant]
     Indication: CONTRACEPTION
     Dosage: 0.35 MG, QD
     Route: 048
  4. GILENYA [Suspect]
     Dosage: 0.5 MG, QD
     Route: 048
  5. WELLBUTRIN XL [Concomitant]
     Indication: AFFECTIVE DISORDER
     Dosage: 300 MG, QD, EVERY MORNING.
     Route: 048

REACTIONS (12)
  - VISUAL IMPAIRMENT [None]
  - FATIGUE [None]
  - MATERNAL EXPOSURE DURING PREGNANCY [None]
  - TINNITUS [None]
  - DYSPNOEA [None]
  - DEAFNESS [None]
  - MEMORY IMPAIRMENT [None]
  - NUCLEAR MAGNETIC RESONANCE IMAGING ABNORMAL [None]
  - DEPRESSED MOOD [None]
  - ABORTION SPONTANEOUS [None]
  - INSOMNIA [None]
  - WEIGHT DECREASED [None]
